FAERS Safety Report 9232664 (Version 1)
Quarter: 2013Q1

REPORT INFORMATION
  Report Type: Spontaneous
  Country: US (occurrence: None)
  Receive Date: 20121031
  Receipt Date: 20121031
  Transmission Date: 20140127
  Serious: No
  Sender: FDA-Public Use
  Company Number: PHEH2012US013183

PATIENT
  Sex: Female
  Weight: 76.2 kg

DRUGS (10)
  1. GILENYA (FTY) CAPSULE, 0.5MG [Suspect]
     Indication: MULTIPLE SCLEROSIS
     Route: 048
  2. NORVASC (AMLODIPINE BESILATE) [Concomitant]
  3. HYDROCODONE (HYDROCODONE) [Concomitant]
  4. XANAX(ALPRAZOLAM) [Concomitant]
  5. KLONOPIN (CLONAZEPAM) [Concomitant]
  6. ASPIRIN (ACETYLSALICYLIC ACID) [Concomitant]
  7. PREMARIN (ESTROGENS CONJUGATED) [Concomitant]
  8. PROZAC (FLUOXETINE HYDROCHLORIDE) [Concomitant]
  9. TYLENOL (PARACETAMOL) [Concomitant]
  10. MULTI-VIT (VITAMINS NOS) [Concomitant]

REACTIONS (3)
  - Ear pain [None]
  - Otorrhoea [None]
  - Lymphadenopathy [None]
